FAERS Safety Report 20136465 (Version 1)
Quarter: 2021Q4

REPORT INFORMATION
  Report Type: Spontaneous
  Country: US (occurrence: None)
  Receive Date: 20211201
  Receipt Date: 20211201
  Transmission Date: 20220304
  Serious: No
  Sender: FDA-Public Use
  Company Number: None

PATIENT
  Age: 62 Year
  Sex: Female
  Weight: 147.42 kg

DRUGS (1)
  1. XELJANZ [Suspect]
     Active Substance: TOFACITINIB CITRATE
     Indication: Psoriatic arthropathy
     Dosage: OTHER QUANTITY : TAKE 1 TABLE;?FREQUENCY : TWICE A WEEK;?
     Route: 048
     Dates: start: 202110

REACTIONS (1)
  - Nasopharyngitis [None]
